FAERS Safety Report 10267451 (Version 1)
Quarter: 2014Q2

REPORT INFORMATION
  Report Type: Spontaneous
  Country: US (occurrence: None)
  Receive Date: 20140625
  Receipt Date: 20140625
  Transmission Date: 20141212
  Serious: Yes (Hospitalization, Other)
  Sender: FDA-Public Use
  Company Number: 2014PAC00008

PATIENT
  Age: 66 Year
  Sex: Female

DRUGS (15)
  1. FLUCONAZOLE [Suspect]
     Indication: FUNGAL INFECTION
     Dosage: 1X
     Route: 048
  2. METHOTREXATE [Concomitant]
  3. PREDNISONE [Concomitant]
  4. FUROSEMIDE [Concomitant]
  5. ALPRAZOLAM [Concomitant]
  6. CARISOPRODOL [Concomitant]
  7. FOLIC ACID [Concomitant]
  8. CONJUGATED ESTROGENS [Concomitant]
  9. TRIATROPONIUM POWDER [Concomitant]
  10. OMEPRAZOLE [Concomitant]
  11. SUMITRIPTAN [Concomitant]
  12. HYDROCODONE WITH ACETAMINOPHEN [Concomitant]
  13. VANCOMYCIN [Concomitant]
  14. TIGECYCLINE [Concomitant]
  15. AZTREONAM [Concomitant]

REACTIONS (4)
  - Bone marrow failure [None]
  - Agranulocytosis [None]
  - Dyspnoea [None]
  - Haemodynamic instability [None]
